FAERS Safety Report 6501689 (Version 2)
Quarter: 2014Q3

REPORT INFORMATION
  Report Type: Spontaneous
  Country: PT (occurrence: PT)
  Receive Date: 20071214
  Receipt Date: 20140728
  Transmission Date: 20150326
  Serious: Yes (Other)
  Sender: FDA-Public Use
  Company Number: PT-RANBAXY-2007US-11954

PATIENT

DRUGS (4)
  1. CHORATALIDONE [Suspect]
     Active Substance: CHLORTHALIDONE
     Indication: HYPERTENSION
     Dosage: 50MG, UNK
  2. IRBESARTAN. [Suspect]
     Active Substance: IRBESARTAN
     Indication: HYPERTENSION
     Dosage: 300MG, UNK
  3. ISOPTIN SR [Suspect]
     Active Substance: VERAPAMIL HYDROCHLORIDE
     Indication: HYPERTENSION
     Dosage: 240MG, UNK
     Dates: start: 2003
  4. ETORICOXIB [Suspect]
     Active Substance: ETORICOXIB
     Indication: ARTHROPATHY
     Dosage: 90MG, QD
     Dates: start: 20070216, end: 20070314

REACTIONS (3)
  - Drug interaction [Recovered/Resolved]
  - Inhibitory drug interaction [None]
  - Hypertensive crisis [Recovered/Resolved]

NARRATIVE: CASE EVENT DATE: 20070225
